FAERS Safety Report 19644852 (Version 1)
Quarter: 2021Q3

REPORT INFORMATION
  Report Type: Spontaneous
  Country: US (occurrence: US)
  Receive Date: 20210802
  Receipt Date: 20210802
  Transmission Date: 20211014
  Serious: Yes (Death, Hospitalization)
  Sender: FDA-Public Use
  Company Number: US-ROCHE-2880919

PATIENT
  Age: 58 Year
  Sex: Female

DRUGS (2)
  1. KEYTRUDA [Concomitant]
     Active Substance: PEMBROLIZUMAB
     Indication: METASTASES TO CENTRAL NERVOUS SYSTEM
     Dates: start: 202009, end: 202101
  2. AVASTIN [Suspect]
     Active Substance: BEVACIZUMAB
     Indication: PRODUCT USED FOR UNKNOWN INDICATION
     Route: 065
     Dates: start: 202101, end: 202101

REACTIONS (3)
  - Off label use [Unknown]
  - Impaired healing [Fatal]
  - Intestinal perforation [Unknown]

NARRATIVE: CASE EVENT DATE: 202101
